FAERS Safety Report 8841918 (Version 1)
Quarter: 2012Q4

REPORT INFORMATION
  Report Type: 
  Country: US (occurrence: US)
  Receive Date: 20121016
  Receipt Date: 20121016
  Transmission Date: 20130627
  Serious: Yes (Hospitalization)
  Sender: FDA-Public Use
  Company Number: US-BAYER-2012-106410

PATIENT
  Age: 38 Year
  Sex: Female

DRUGS (5)
  1. YASMIN [Suspect]
  2. DEMEROL [Concomitant]
     Indication: PAIN
     Dosage: UNK UNK, PRN
  3. MOTRIN [Concomitant]
     Indication: MIGRAINE
  4. PEPCID [Concomitant]
     Indication: PROPHYLAXIS AGAINST GASTROINTESTINAL ULCER
  5. LORTAB [Concomitant]
     Indication: PAIN

REACTIONS (1)
  - Deep vein thrombosis [None]
